FAERS Safety Report 20068047 (Version 1)
Quarter: 2021Q4

REPORT INFORMATION
  Report Type: Other
  Country: JP (occurrence: None)
  Receive Date: 20211115
  Receipt Date: 20211115
  Transmission Date: 20220304
  Serious: Yes (Other)
  Sender: FDA-Public Use
  Company Number: JP-ROCHE-2954905

PATIENT

DRUGS (4)
  1. CAPECITABINE [Suspect]
     Active Substance: CAPECITABINE
     Indication: Rectal cancer
     Route: 065
  2. TS-1 [Suspect]
     Active Substance: GIMERACIL\OTERACIL\TEGAFUR
     Indication: Rectal cancer
     Route: 065
  3. UFT [Suspect]
     Active Substance: TEGAFUR\URACIL
     Indication: Rectal cancer
     Route: 065
  4. POLYSACCHARIDE-K [Suspect]
     Active Substance: POLYSACCHARIDE-K
     Indication: Rectal cancer
     Route: 065

REACTIONS (3)
  - Enterocolitis [Unknown]
  - Nausea [Unknown]
  - Dermatitis [Unknown]
